FAERS Safety Report 8364992-0 (Version None)
Quarter: 2012Q2

REPORT INFORMATION
  Report Type: 
  Country: None (occurrence: None)
  Receive Date: 20120514
  Receipt Date: 20120427
  Transmission Date: 20120825
  Serious: Yes (Hospitalization)
  Sender: FDA-Public Use
  Company Number: LMI-2012-00134

PATIENT
  Age: 63 Year
  Sex: Male
  Weight: 66 kg

DRUGS (15)
  1. THEOPHYLLINE [Concomitant]
  2. ASPIRIN [Concomitant]
  3. METOPROLOL TARTRATE [Concomitant]
  4. SPIRONOLACTONE [Concomitant]
  5. BERODUAL (FENOTEROL HYDROBROMIDE, IPRATROPIUM BROMIDE) [Concomitant]
  6. DEFINITY [Suspect]
     Indication: PRODUCT USED FOR UNKNOWN INDICATION
     Dosage: 1 VIAL OF DEFINITY WITH 8.7  ML OF NORMAL SALINE, INTRAVENOUS
     Route: 042
     Dates: start: 20111019, end: 20111019
  7. DEFINITY [Suspect]
     Indication: PRODUCT USED FOR UNKNOWN INDICATION
     Dosage: 1 VIAL OF DEFINITY WITH 8.7  ML OF NORMAL SALINE, INTRAVENOUS
     Route: 042
     Dates: start: 20101008, end: 20101008
  8. DEFINITY [Suspect]
     Indication: PRODUCT USED FOR UNKNOWN INDICATION
     Dosage: 1 VIAL OF DEFINITY WITH 8.7  ML OF NORMAL SALINE, INTRAVENOUS
     Route: 042
     Dates: start: 20110629, end: 20110629
  9. DEFINITY [Suspect]
     Indication: PRODUCT USED FOR UNKNOWN INDICATION
     Dosage: 1 VIAL OF DEFINITY WITH 8.7  ML OF NORMAL SALINE, INTRAVENOUS
     Route: 042
     Dates: start: 20100929, end: 20100929
  10. VENLAFAXINE HCL [Concomitant]
  11. ALBUTEROL SULFATE [Concomitant]
  12. BECLOMETHASONE/FENOTEROL (BECLOMETASONE, FENOTEROL) [Concomitant]
  13. RAMIPRIL [Concomitant]
  14. DIGITOXIN TAB [Concomitant]
  15. TOPASEMID (TORASEMIDE) [Concomitant]

REACTIONS (4)
  - CONGESTIVE CARDIOMYOPATHY [None]
  - EJECTION FRACTION DECREASED [None]
  - SYNCOPE [None]
  - DISEASE PROGRESSION [None]
